FAERS Safety Report 6687053-5 (Version None)
Quarter: 2010Q2

REPORT INFORMATION
  Report Type: 
  Country: None (occurrence: None)
  Receive Date: 20100414
  Receipt Date: 20090604
  Transmission Date: 20101027
  Serious: Yes (Hospitalization)
  Sender: FDA-Public Use
  Company Number: DSA_33795_2009

PATIENT
  Age: 20 Year
  Sex: Male

DRUGS (1)
  1. DICLOFENAC SODIUM [Suspect]
     Indication: DRUG USE FOR UNKNOWN INDICATION
     Dosage: (1 INJECTION INTRAMUSCULAR) ; (FREQUENCY UNKNOWN)
     Route: 030

REACTIONS (19)
  - ALANINE AMINOTRANSFERASE ABNORMAL [None]
  - ASPARTATE AMINOTRANSFERASE ABNORMAL [None]
  - BLOOD LACTATE DEHYDROGENASE ABNORMAL [None]
  - COMPARTMENT SYNDROME [None]
  - DRUG TOXICITY [None]
  - EMBOLIA CUTIS MEDICAMENTOSA [None]
  - ESCHAR [None]
  - HAEMORRHAGE [None]
  - INJECTION SITE PAIN [None]
  - MUSCLE INJURY [None]
  - MUSCLE NECROSIS [None]
  - MYALGIA [None]
  - MYOGLOBIN BLOOD INCREASED [None]
  - OEDEMA [None]
  - PAIN [None]
  - PALLOR [None]
  - PURPURA [None]
  - RASH ERYTHEMATOUS [None]
  - SKIN HYPOPIGMENTATION [None]
